FAERS Safety Report 10083915 (Version 1)
Quarter: 2014Q2

REPORT INFORMATION
  Report Type: Spontaneous
  Country: US (occurrence: US)
  Receive Date: 20140417
  Receipt Date: 20140417
  Transmission Date: 20141212
  Serious: Yes (Other)
  Sender: FDA-Public Use
  Company Number: US-AMGEN INC.-USASP2014027343

PATIENT
  Age: 48 Year
  Sex: Female
  Weight: 69.84 kg

DRUGS (11)
  1. ENBREL [Suspect]
     Indication: RHEUMATOID ARTHRITIS
     Dosage: 50 MG, QWK
     Route: 058
     Dates: start: 20140402
  2. ENBREL [Suspect]
     Indication: PSORIATIC ARTHROPATHY
  3. PREDNISONE [Suspect]
     Indication: RHEUMATOID ARTHRITIS
     Dosage: FOR 10 DAYS
     Route: 065
     Dates: end: 20140406
  4. ADVAIR [Concomitant]
     Dosage: UNK
  5. ESTROVEN [Concomitant]
     Dosage: UNK
  6. EXCEDRIN MIGRAINE [Concomitant]
     Dosage: UNK
  7. IBUPROFEN [Concomitant]
     Dosage: UNK
  8. SULFASALAZINE [Concomitant]
     Dosage: UNK
  9. TOPAMAX [Concomitant]
     Dosage: UNK
  10. VENTOLIN                           /00139501/ [Concomitant]
     Dosage: UNK
  11. VITAMIN D                          /00107901/ [Concomitant]
     Dosage: UNK

REACTIONS (6)
  - Chest discomfort [Recovered/Resolved]
  - Feeling abnormal [Recovered/Resolved]
  - Migraine [Recovered/Resolved]
  - Fatigue [Not Recovered/Not Resolved]
  - Anxiety [Recovered/Resolved]
  - Insomnia [Recovered/Resolved]
